FAERS Safety Report 8471917-6 (Version None)
Quarter: 2012Q2

REPORT INFORMATION
  Report Type: 
  Country: None (occurrence: None)
  Receive Date: 20120627
  Receipt Date: 20120619
  Transmission Date: 20120825
  Serious: Yes (Hospitalization)
  Sender: FDA-Public Use
  Company Number: US-BAYER-2012-042750

PATIENT
  Age: 28 Year
  Sex: Female
  Weight: 95.238 kg

DRUGS (5)
  1. DIAZEPAM [Concomitant]
     Dosage: 5 MG, UNK
     Route: 048
     Dates: start: 20090813
  2. HYDROCODONE BITARTRATE AND ACETAMINOPHEN [Concomitant]
     Dosage: 7.5/750MG
     Route: 048
     Dates: start: 20090826
  3. ONDANSETRON (ZOFRAN) [Concomitant]
     Dosage: 8 MG, UNK
     Route: 048
     Dates: start: 20090826
  4. YAZ [Suspect]
     Indication: CONTRACEPTION
     Dosage: UNK
     Dates: start: 20080516, end: 20090924
  5. CIPROFLOXACIN [Concomitant]
     Dosage: 500 MG, UNK
     Route: 048
     Dates: start: 20090826

REACTIONS (5)
  - PAIN [None]
  - PULMONARY EMBOLISM [None]
  - BACK PAIN [None]
  - INJURY [None]
  - ABDOMINAL PAIN [None]
